FAERS Safety Report 8951074 (Version 2)
Quarter: 2012Q4

REPORT INFORMATION
  Report Type: 
  Country: FR (occurrence: FR)
  Receive Date: 20121207
  Receipt Date: 20121218
  Transmission Date: 20130627
  Serious: Yes (Life-Threatening, Hospitalization, Other)
  Sender: FDA-Public Use
  Company Number: FR-PFIZER INC-2012303412

PATIENT
  Age: 85 Year
  Sex: Female

DRUGS (8)
  1. TRIATEC [Suspect]
     Dosage: 5 mg, daily
     Route: 048
     Dates: end: 20121112
  2. ALDACTONE [Suspect]
     Dosage: 50 mg, daily
     Route: 048
     Dates: start: 201206, end: 20121112
  3. AVLOCARDYL [Concomitant]
     Dosage: 160 mg, daily
     Route: 048
     Dates: end: 20121112
  4. TARDYFERON [Concomitant]
     Dosage: 80 mg, 3x/day
     Route: 048
     Dates: start: 2009
  5. IMOVANE [Concomitant]
     Dosage: 1 DF, daily
     Route: 048
     Dates: end: 20121112
  6. INEXIUM [Concomitant]
     Indication: ENDOBRACHYOESOPHAGUS
     Dosage: 1 DF, daily
     Route: 048
  7. LASILIX [Concomitant]
     Dosage: 1 DF, daily
     Route: 048
     Dates: end: 20121112
  8. LEVOTHYROX [Concomitant]
     Dosage: 2 DF, daily
     Route: 048

REACTIONS (11)
  - Hyperkalaemia [Recovered/Resolved]
  - Renal failure acute [Recovered/Resolved]
  - Bradycardia [Recovered/Resolved]
  - Metabolic acidosis [Recovered/Resolved]
  - Hypothermia [Recovered/Resolved]
  - Hypotension [Recovered/Resolved]
  - Renal cyst [Unknown]
  - Asthenia [Recovered/Resolved]
  - Decreased appetite [Recovered/Resolved]
  - Diarrhoea [Recovered/Resolved]
  - Dehydration [Recovered/Resolved]
